FAERS Safety Report 6280232-0 (Version None)
Quarter: 2009Q3

REPORT INFORMATION
  Report Type: 
  Country: None (occurrence: None)
  Receive Date: 20090723
  Receipt Date: 20090714
  Transmission Date: 20100115
  Serious: Yes (Disabling)
  Sender: FDA-Public Use
  Company Number: PR-MERCK-0805USA02800

PATIENT
  Age: 60 Year
  Sex: Female

DRUGS (2)
  1. FOSAMAX [Suspect]
     Indication: OSTEOPOROSIS
     Route: 048
     Dates: start: 20021101, end: 20070101
  2. FOSAMAX [Suspect]
     Route: 048

REACTIONS (7)
  - BONE DISORDER [None]
  - HYPERLIPIDAEMIA [None]
  - MUSCLE SPASMS [None]
  - OSTEONECROSIS [None]
  - OVERDOSE [None]
  - PRURITUS ALLERGIC [None]
  - TOOTH DISORDER [None]
